FAERS Safety Report 11603432 (Version 1)
Quarter: 2015Q4

REPORT INFORMATION
  Report Type: Spontaneous
  Country: US (occurrence: None)
  Receive Date: 20151005
  Receipt Date: 20151005
  Transmission Date: 20160304
  Serious: No
  Sender: FDA-Public Use
  Company Number: None

PATIENT
  Age: 34 Year
  Sex: Female
  Weight: 93.9 kg

DRUGS (8)
  1. CHANTIX [Suspect]
     Active Substance: VARENICLINE TARTRATE
     Indication: SMOKING CESSATION THERAPY
     Dosage: 1
     Route: 048
     Dates: start: 20150615, end: 20150701
  2. TYLENOL [Concomitant]
     Active Substance: ACETAMINOPHEN
  3. VIIBRYD [Concomitant]
     Active Substance: VILAZODONE HYDROCHLORIDE
  4. FISH OIL [Concomitant]
     Active Substance: FISH OIL
  5. MULTIVITAMIN [Concomitant]
     Active Substance: VITAMINS
  6. LYRICA [Concomitant]
     Active Substance: PREGABALIN
  7. MOTRIN [Concomitant]
     Active Substance: IBUPROFEN
  8. OSTEO-BIFLEX [Concomitant]

REACTIONS (5)
  - Paranoia [None]
  - Psychotic behaviour [None]
  - Aggression [None]
  - Arthropathy [None]
  - Physical abuse [None]

NARRATIVE: CASE EVENT DATE: 20150701
